FAERS Safety Report 8531474-2 (Version None)
Quarter: 2012Q3

REPORT INFORMATION
  Report Type: 
  Country: None (occurrence: None)
  Receive Date: 20120723
  Receipt Date: 20120716
  Transmission Date: 20120928
  Serious: No
  Sender: FDA-Public Use
  Company Number: CA-JNJFOC-20120708302

PATIENT
  Sex: Female
  Weight: 95.5 kg

DRUGS (2)
  1. METHOTREXATE [Concomitant]
     Route: 048
  2. REMICADE [Suspect]
     Indication: CROHN'S DISEASE
     Route: 042
     Dates: start: 20071127

REACTIONS (1)
  - HERPES ZOSTER [None]
